FAERS Safety Report 21009502 (Version 4)
Quarter: 2022Q2

REPORT INFORMATION
  Report Type: Spontaneous
  Country: US (occurrence: US)
  Receive Date: 20220627
  Receipt Date: 20220627
  Transmission Date: 20220721
  Serious: No
  Sender: FDA-Public Use
  Company Number: ALC2021US004492

PATIENT
  Sex: Male

DRUGS (2)
  1. PATADAY ONCE DAILY RELIEF [Suspect]
     Active Substance: OLOPATADINE HYDROCHLORIDE
     Indication: Headache
     Dosage: 1 DRP
     Route: 047
     Dates: start: 20210720
  2. PATADAY ONCE DAILY RELIEF [Suspect]
     Active Substance: OLOPATADINE HYDROCHLORIDE
     Indication: Macular oedema
     Dosage: 1 DRP
     Route: 047
     Dates: start: 20210721

REACTIONS (1)
  - Vision blurred [Not Recovered/Not Resolved]
